FAERS Safety Report 23169429 (Version 1)
Quarter: 2023Q4

REPORT INFORMATION
  Report Type: Spontaneous
  Country: EU (occurrence: EU)
  Receive Date: 20231110
  Receipt Date: 20231110
  Transmission Date: 20240110
  Serious: Yes (Life-Threatening)
  Sender: FDA-Public Use
  Company Number: None

PATIENT
  Age: 56 Year
  Sex: Female

DRUGS (1)
  1. OCTAGAM IMMUNE GLOBULIN (HUMAN) [Suspect]
     Active Substance: HUMAN IMMUNOGLOBULIN G
     Indication: Immune thrombocytopenia
     Route: 042
     Dates: start: 20231004, end: 20231005

REACTIONS (3)
  - Bacterial sepsis [Recovering/Resolving]
  - Raoultella ornithinolytica infection [Recovering/Resolving]
  - Transmission of an infectious agent via product [Recovering/Resolving]

NARRATIVE: CASE EVENT DATE: 20231005
